FAERS Safety Report 13145518 (Version 1)
Quarter: 2017Q1

REPORT INFORMATION
  Report Type: Spontaneous
  Country: US (occurrence: US)
  Receive Date: 20170124
  Receipt Date: 20170124
  Transmission Date: 20170428
  Serious: Yes (Other)
  Sender: FDA-Public Use
  Company Number: US-ELI_LILLY_AND_COMPANY-US201701006150

PATIENT
  Sex: Male

DRUGS (4)
  1. HUMULIN R [Suspect]
     Active Substance: INSULIN HUMAN
     Dosage: 20 U, PRN
     Route: 065
     Dates: start: 2013
  2. COUMADIN [Concomitant]
     Active Substance: WARFARIN SODIUM
     Dosage: 25 U, UNKNOWN
  3. HALDOL [Concomitant]
     Active Substance: HALOPERIDOL
  4. HUMULIN R [Suspect]
     Active Substance: INSULIN HUMAN
     Indication: DIABETES MELLITUS
     Dosage: 25 U, PRN
     Route: 065
     Dates: start: 2013

REACTIONS (8)
  - Mobility decreased [Unknown]
  - Blood glucose increased [Unknown]
  - Dyspnoea [Unknown]
  - Pain [Unknown]
  - Injection site pain [Unknown]
  - Local swelling [Unknown]
  - Thrombosis [Unknown]
  - Skin discolouration [Unknown]
